FAERS Safety Report 18413475 (Version 2)
Quarter: 2021Q1

REPORT INFORMATION
  Report Type: Spontaneous
  Country: US (occurrence: US)
  Receive Date: 20201022
  Receipt Date: 20210120
  Transmission Date: 20210419
  Serious: No
  Sender: FDA-Public Use
  Company Number: US-AUROBINDO-AUR-APL-2020-045997

PATIENT
  Sex: Female

DRUGS (2)
  1. OLOPATADINE HYDROCHLORIDE OPHTHALMIC SOLUTION USP 0.2 % [Suspect]
     Active Substance: OLOPATADINE HYDROCHLORIDE
     Dosage: 1 GTT DROPS, ONCE A DAY
     Route: 065
  2. OLOPATADINE HYDROCHLORIDE OPHTHALMIC SOLUTION USP 0.2 % [Suspect]
     Active Substance: OLOPATADINE HYDROCHLORIDE
     Indication: PRODUCT USED FOR UNKNOWN INDICATION
     Dosage: 1 GTT DROPS, TWO TIMES A DAY (MORNING AND NIGHT)
     Route: 065
     Dates: start: 20200808

REACTIONS (1)
  - Off label use [Unknown]
